FAERS Safety Report 4648338-7 (Version None)
Quarter: 2005Q2

REPORT INFORMATION
  Report Type: 
  Country: None (occurrence: None)
  Receive Date: 20050427
  Receipt Date: 20050419
  Transmission Date: 20051028
  Serious: Yes (Death)
  Sender: FDA-Public Use
  Company Number: HQWYE131019APR05

PATIENT
  Age: 68 Year
  Sex: Male

DRUGS (6)
  1. AMIODARONE HCL [Suspect]
     Indication: ATRIAL FIBRILLATION
     Dosage: INTRAVENOUS
     Route: 042
     Dates: start: 19970526, end: 19970527
  2. AMIODARONE HCL [Suspect]
     Indication: ATRIAL FLUTTER
     Dosage: INTRAVENOUS
     Route: 042
     Dates: start: 19970526, end: 19970527
  3. SALMETEROL (SALMETEROL, ) [Suspect]
     Dosage: INHALATION
     Route: 055
     Dates: start: 19970523, end: 19970526
  4. HEPARIN [Concomitant]
  5. AMOXICILLIN TRIHYDRATE/CLAVULANATE POTASSIUM (AMOXICILLIN TRIHYDRATE/C [Concomitant]
  6. PREDNISONE [Concomitant]

REACTIONS (2)
  - BRADYCARDIA [None]
  - DRUG INTERACTION [None]
